FAERS Safety Report 12442501 (Version 1)
Quarter: 2016Q2

REPORT INFORMATION
  Report Type: Spontaneous
  Country: US (occurrence: None)
  Receive Date: 20160606
  Receipt Date: 20160606
  Transmission Date: 20160815
  Serious: Yes (Disabling)
  Sender: FDA-Public Use
  Company Number: None

PATIENT
  Age: 31 Year
  Sex: Male
  Weight: 110.22 kg

DRUGS (8)
  1. CLONAZEPAM 1MG, 1 MG ACCORD HEALTHCARE [Suspect]
     Active Substance: CLONAZEPAM
     Indication: TREMOR
     Dosage: 120 TABLETS FOUR TIMES A DAY
     Route: 048
  2. WHEY PROTEIN ISLOATE [Concomitant]
  3. SYNTHROID [Concomitant]
     Active Substance: LEVOTHYROXINE SODIUM
  4. PROTEIN POWDERS [Concomitant]
  5. CLONAZEPAM 1MG, 1 MG ACCORD HEALTHCARE [Suspect]
     Active Substance: CLONAZEPAM
     Indication: ANXIETY
     Dosage: 120 TABLETS FOUR TIMES A DAY
     Route: 048
  6. LISINOPRIL. [Concomitant]
     Active Substance: LISINOPRIL
  7. CLONAZEPAM 1MG, 1 MG ACCORD HEALTHCARE [Suspect]
     Active Substance: CLONAZEPAM
     Indication: DEPRESSED MOOD
     Dosage: 120 TABLETS FOUR TIMES A DAY
     Route: 048
  8. CLONAZEPAM. [Concomitant]
     Active Substance: CLONAZEPAM

REACTIONS (2)
  - Product quality issue [None]
  - Drug ineffective [None]

NARRATIVE: CASE EVENT DATE: 20160601
